FAERS Safety Report 14896853 (Version 1)
Quarter: 2018Q2

REPORT INFORMATION
  Report Type: Spontaneous
  Country: US (occurrence: US)
  Receive Date: 20180427
  Receipt Date: 20180427
  Transmission Date: 20180711
  Serious: Yes (Disabling)
  Sender: FDA-Public Use
  Company Number: None

PATIENT
  Age: 53 Year
  Sex: Female
  Weight: 97.2 kg

DRUGS (12)
  1. BENADRYL [Concomitant]
     Active Substance: DIPHENHYDRAMINE HYDROCHLORIDE
  2. RESTORIL [Concomitant]
     Active Substance: TEMAZEPAM
  3. ALTERIL [Concomitant]
  4. FISH OIL [Concomitant]
     Active Substance: FISH OIL
  5. LAMICTAL [Suspect]
     Active Substance: LAMOTRIGINE
     Indication: BIPOLAR DISORDER
     Dosage: ?          QUANTITY:1 TABLET(S);?
     Route: 048
  6. CLONAZEPAM. [Concomitant]
     Active Substance: CLONAZEPAM
  7. LISINOPRIL. [Concomitant]
     Active Substance: LISINOPRIL
  8. MYRBETRIC [Concomitant]
  9. ATORVASTATIN [Concomitant]
     Active Substance: ATORVASTATIN
  10. OMEPRIZOLE [Concomitant]
  11. VITAMIN D3 [Concomitant]
     Active Substance: CHOLECALCIFEROL
  12. CALCIUM [Concomitant]
     Active Substance: CALCIUM

REACTIONS (5)
  - Blood triglycerides increased [None]
  - Urinary tract infection [None]
  - Blood cholesterol increased [None]
  - Haemorrhagic diathesis [None]
  - Hepatomegaly [None]

NARRATIVE: CASE EVENT DATE: 20070101
